FAERS Safety Report 10157576 (Version 2)
Quarter: 2014Q3

REPORT INFORMATION
  Report Type: Spontaneous
  Country: CA (occurrence: CA)
  Receive Date: 20140507
  Receipt Date: 20140926
  Transmission Date: 20150326
  Serious: Yes (Hospitalization, Other)
  Sender: FDA-Public Use
  Company Number: CA-PFIZER INC-2014123879

PATIENT
  Age: 48 Year
  Sex: Female
  Weight: 61 kg

DRUGS (4)
  1. PANTOLOC [Suspect]
     Active Substance: PANTOPRAZOLE SODIUM
     Dosage: UNK
  2. ATENOLOL. [Concomitant]
     Active Substance: ATENOLOL
     Dosage: UNK
  3. REMICADE [Suspect]
     Active Substance: INFLIXIMAB
     Indication: CROHN^S DISEASE
     Dosage: 300 MG, ONE Q8WEEKS
     Route: 042
     Dates: start: 201010
  4. IMURAN [Suspect]
     Active Substance: AZATHIOPRINE
     Dosage: UNK

REACTIONS (2)
  - Pancreatitis [Recovered/Resolved]
  - Fistula [Recovered/Resolved]

NARRATIVE: CASE EVENT DATE: 201304
